FAERS Safety Report 7569823-4 (Version None)
Quarter: 2011Q2

REPORT INFORMATION
  Report Type: 
  Country: None (occurrence: None)
  Receive Date: 20110620
  Receipt Date: 20110606
  Transmission Date: 20111010
  Serious: Yes (Hospitalization)
  Sender: FDA-Public Use
  Company Number: UTC-007691

PATIENT
  Age: 75 Year
  Sex: Female

DRUGS (4)
  1. REVATIO [Concomitant]
  2. TRACLEER [Concomitant]
  3. DIURETICS (DIURETICS) [Concomitant]
  4. REMODULIN [Suspect]
     Indication: PULMONARY ARTERIAL HYPERTENSION
     Dosage: 76.176 UG/KG (0.0529 UG/KG,1 IN 1 MIN),INTRAVENOUS
     Route: 042
     Dates: start: 20090522

REACTIONS (2)
  - OEDEMA [None]
  - SKIN INFECTION [None]
